FAERS Safety Report 9463144 (Version 2)
Quarter: 2013Q3

REPORT INFORMATION
  Report Type: Spontaneous
  Country: US (occurrence: US)
  Receive Date: 20130817
  Receipt Date: 20130924
  Transmission Date: 20140515
  Serious: No
  Sender: FDA-Public Use
  Company Number: US-009507513-1308USA006456

PATIENT
  Age: 49 Year
  Sex: Male

DRUGS (3)
  1. PEGINTRON [Suspect]
     Indication: HEPATITIS C
     Dosage: REDIPEN
     Dates: start: 20130812
  2. REBETOL [Suspect]
     Indication: HEPATITIS C
     Dosage: UNK
     Route: 048
     Dates: start: 20130812
  3. INSULIN [Concomitant]
     Indication: DIABETES MELLITUS
     Dosage: PEN

REACTIONS (8)
  - Abdominal pain [Recovering/Resolving]
  - Nausea [Recovering/Resolving]
  - Influenza [Recovering/Resolving]
  - Myalgia [Recovering/Resolving]
  - Dyspepsia [Unknown]
  - Abdominal distension [Unknown]
  - Dysgeusia [Unknown]
  - Blood glucose increased [Unknown]
